FAERS Safety Report 5451285-4 (Version None)
Quarter: 2007Q3

REPORT INFORMATION
  Report Type: 
  Country: None (occurrence: None)
  Receive Date: 20070911
  Receipt Date: 20070911
  Transmission Date: 20080115
  Serious: Yes (Hospitalization)
  Sender: FDA-Public Use
  Company Number: None

PATIENT
  Age: 61 Year
  Sex: Female
  Weight: 63 kg

DRUGS (2)
  1. LIPITOR [Suspect]
     Indication: BLOOD CHOLESTEROL INCREASED
     Dosage: 40MG DAILY PO
     Route: 048
     Dates: start: 20000301, end: 20070907
  2. TRICOR [Suspect]
     Indication: BLOOD CHOLESTEROL INCREASED
     Dosage: 154 THEN 145MG DAILY PO
     Route: 048
     Dates: start: 20000301, end: 20070907

REACTIONS (3)
  - ASPARTATE AMINOTRANSFERASE INCREASED [None]
  - DYSPNOEA [None]
  - RHABDOMYOLYSIS [None]
